FAERS Safety Report 22647309 (Version 1)
Quarter: 2023Q2

REPORT INFORMATION
  Report Type: Report from Study
  Country: US (occurrence: US)
  Receive Date: 20230627
  Receipt Date: 20230627
  Transmission Date: 20230721
  Serious: Yes (Hospitalization)
  Sender: FDA-Public Use
  Company Number: US-ABBVIE-5306323

PATIENT
  Sex: Female

DRUGS (1)
  1. LINZESS [Suspect]
     Active Substance: LINACLOTIDE
     Indication: Irritable bowel syndrome
     Dosage: 145 MICROGRAM, FREQUENCY TEXT: 145 ONCE PER DAY, START DATE: AT LEAST 4-5 YEARS AGO
     Route: 048
     Dates: start: 2018

REACTIONS (1)
  - Illness [Recovered/Resolved]
